FAERS Safety Report 6817367-7 (Version None)
Quarter: 2010Q3

REPORT INFORMATION
  Report Type: 
  Country: None (occurrence: None)
  Receive Date: 20100706
  Receipt Date: 20100623
  Transmission Date: 20110219
  Serious: Yes (Other)
  Sender: FDA-Public Use
  Company Number: US-BAYER-201026716NA

PATIENT
  Age: 28 Year
  Sex: Female
  Weight: 77 kg

DRUGS (7)
  1. YAZ [Suspect]
     Indication: ORAL CONTRACEPTION
     Route: 048
     Dates: start: 20020101, end: 20060101
  2. YAZ [Suspect]
     Route: 048
     Dates: start: 20070101, end: 20080101
  3. YASMIN [Suspect]
     Indication: ORAL CONTRACEPTION
     Route: 048
     Dates: start: 20070101, end: 20080101
  4. YASMIN [Suspect]
     Route: 048
     Dates: start: 20020101, end: 20060101
  5. ZANTAC [Concomitant]
     Indication: DYSPEPSIA
  6. PREVACID [Concomitant]
     Indication: DYSPEPSIA
  7. MOTRIN [Concomitant]
     Indication: PAIN
     Dosage: 4 DAILY

REACTIONS (4)
  - GALLBLADDER DISORDER [None]
  - PAIN [None]
  - VOMITING [None]
  - WEIGHT DECREASED [None]
